FAERS Safety Report 12476116 (Version 1)
Quarter: 2016Q2

REPORT INFORMATION
  Report Type: Spontaneous
  Country: NL (occurrence: NL)
  Receive Date: 20160617
  Receipt Date: 20160617
  Transmission Date: 20160815
  Serious: Yes (Death, Other)
  Sender: FDA-Public Use
  Company Number: NL-TEVA-668306ISR

PATIENT
  Age: 48 Year
  Sex: Male

DRUGS (8)
  1. AMPHOTERICIN B. [Concomitant]
     Active Substance: AMPHOTERICIN B
     Indication: ANTIBIOTIC PROPHYLAXIS
     Dosage: .3 MG/KG DAILY;
     Route: 042
  2. POLYMIXIN B, TOBRAMYCIN, AMPHOTERICIN B [Concomitant]
     Dosage: .5 GRAM DAILY; 2 % POLYMIXIN-B, 2% TOBRAMYCIN AND 2% AMPHOTERICIN-B
     Route: 065
  3. AMPHOTERICIN B LIPOSOMAL [Suspect]
     Active Substance: AMPHOTERICIN B
     Indication: TRICHOSPORON INFECTION
     Dosage: 5 MG/KG DAILY;
     Route: 040
  4. BASILIXIMAB [Suspect]
     Active Substance: BASILIXIMAB
     Dosage: 20 MG ON DAY 0 AND DAY 4 AFTER TRANSPLANTATION
     Route: 065
  5. VORICONAZOLE. [Suspect]
     Active Substance: VORICONAZOLE
     Indication: TRICHOSPORON INFECTION
     Dosage: 400 MILLIGRAM DAILY;
     Route: 042
  6. PIPERACILLIN, TAZOBACTAM [Concomitant]
     Active Substance: PIPERACILLIN SODIUM\TAZOBACTAM SODIUM
     Indication: ANTIBIOTIC PROPHYLAXIS
     Dosage: 1 DOSAGE FORM = 4000MG PIPERACILLIN + 500MG TAZOBACTAM
     Route: 042
  7. FLUCONAZOLE. [Concomitant]
     Active Substance: FLUCONAZOLE
     Indication: ANTIBIOTIC PROPHYLAXIS
     Dosage: 100 MILLIGRAM DAILY;
     Route: 042
  8. HYDROCORTISONE. [Suspect]
     Active Substance: HYDROCORTISONE
     Indication: IMMUNOSUPPRESSANT DRUG THERAPY
     Dosage: 4 MG/H CONTINUOUS
     Route: 042

REACTIONS (5)
  - Trichosporon infection [Not Recovered/Not Resolved]
  - Multiple organ dysfunction syndrome [Fatal]
  - Treatment failure [Not Recovered/Not Resolved]
  - Abdominal compartment syndrome [Not Recovered/Not Resolved]
  - Cholangitis [Not Recovered/Not Resolved]
